FAERS Safety Report 5428998-3 (Version None)
Quarter: 2007Q3

REPORT INFORMATION
  Report Type: 
  Country: None (occurrence: None)
  Receive Date: 20070829
  Receipt Date: 20060824
  Transmission Date: 20080115
  Serious: No
  Sender: FDA-Public Use
  Company Number: A0611309A

PATIENT
  Age: 18 Year
  Sex: Female

DRUGS (4)
  1. MALARONE [Suspect]
     Indication: MALARIA
     Route: 048
  2. LAMICTAL [Concomitant]
  3. EFFEXOR XR [Concomitant]
  4. SEROQUEL [Concomitant]

REACTIONS (1)
  - DEPRESSION [None]
